FAERS Safety Report 6687186-3 (Version None)
Quarter: 2010Q2

REPORT INFORMATION
  Report Type: 
  Country: None (occurrence: None)
  Receive Date: 20100419
  Receipt Date: 20100407
  Transmission Date: 20101027
  Serious: Yes (Life-Threatening, Hospitalization, Disabling)
  Sender: FDA-Public Use
  Company Number: GB-WATSON-2010-05110

PATIENT
  Age: 8 Year
  Sex: Male
  Weight: 21 kg

DRUGS (6)
  1. ATRACURIUM BESYLATE [Suspect]
     Indication: ANAESTHESIA
     Dosage: 10 MG, UNK
     Route: 042
  2. CODRIX (WATSON LABORATORIES) [Suspect]
     Indication: DRUG USE FOR UNKNOWN INDICATION
     Dosage: 400 MG/ 30 MG
  3. ADRENALINE                         /00003901/ [Suspect]
     Indication: DRUG USE FOR UNKNOWN INDICATION
     Dosage: 1:200 000 DILUTION
  4. BUPIVACAINE HCL [Suspect]
     Indication: DRUG USE FOR UNKNOWN INDICATION
     Dosage: UNK
  5. PROPOFOL [Suspect]
     Indication: ANAESTHESIA
     Dosage: 80 MG, UNK
     Route: 042
  6. REMIFENTANIL [Suspect]
     Indication: ANAESTHESIA
     Dosage: UNK

REACTIONS (5)
  - BRAIN STEM HAEMORRHAGE [None]
  - DYSPHAGIA [None]
  - MUSCULAR WEAKNESS [None]
  - RESPIRATORY ACIDOSIS [None]
  - RESPIRATORY FAILURE [None]
